FAERS Safety Report 7393785-6 (Version None)
Quarter: 2011Q2

REPORT INFORMATION
  Report Type: 
  Country: None (occurrence: None)
  Receive Date: 20110405
  Receipt Date: 20110328
  Transmission Date: 20111010
  Serious: Yes (Death)
  Sender: FDA-Public Use
  Company Number: JP-ELI_LILLY_AND_COMPANY-JP201102006141

PATIENT
  Sex: Male
  Weight: 66 kg

DRUGS (15)
  1. ZOLOFT [Concomitant]
     Dosage: 100 MG, QD
     Route: 048
     Dates: start: 20101119, end: 20110221
  2. LIMAS [Concomitant]
     Dosage: 600 MG, TID
     Route: 048
     Dates: start: 20101118, end: 20110221
  3. METLIGINE [Concomitant]
     Indication: ORTHOSTATIC HYPOTENSION
     Dosage: 8 MG, TID
     Route: 048
     Dates: end: 20110221
  4. LENDORMIN [Concomitant]
     Indication: INSOMNIA
     Dosage: 0.25 MG, TID
     Route: 048
     Dates: start: 20100601, end: 20110221
  5. ZYPREXA [Suspect]
     Dosage: 5 MG, PRN
     Route: 048
     Dates: start: 20101216, end: 20101217
  6. MONILAC [Concomitant]
     Indication: HEPATIC ENCEPHALOPATHY PROPHYLAXIS
     Dosage: 60 ML, TID
     Route: 048
     Dates: end: 20110221
  7. URSO 250 [Concomitant]
     Indication: LIVER DISORDER
     Dosage: 60 MG, TID
     Route: 048
     Dates: start: 20100101, end: 20110221
  8. FOIPAN [Concomitant]
     Indication: PANCREATITIS CHRONIC
     Dosage: 600 MG, TID
     Route: 048
     Dates: end: 20110221
  9. LIMAS [Concomitant]
     Indication: BIPOLAR I DISORDER
     Dosage: 400 MG, TID
     Route: 048
     Dates: start: 20101116, end: 20101217
  10. ZYPREXA [Suspect]
     Indication: BIPOLAR I DISORDER
     Dosage: 5 MG, QD
     Route: 048
     Dates: start: 20101112, end: 20101217
  11. SENNOSIDE [Concomitant]
     Indication: CONSTIPATION
     Dosage: 36 MG, TID
     Route: 048
     Dates: end: 20110221
  12. ZYPREXA [Suspect]
     Dosage: 20 MG, QD
     Route: 048
     Dates: start: 20101218, end: 20110221
  13. CYMBALTA [Suspect]
     Indication: BIPOLAR I DISORDER
     Dosage: 20 MG, TID
     Route: 048
     Dates: start: 20101112, end: 20110221
  14. ZOLOFT [Concomitant]
     Indication: BIPOLAR I DISORDER
     Dosage: 50 MG, QD
     Route: 048
     Dates: start: 20101112, end: 20101118
  15. ASPARA K [Concomitant]
     Indication: HYPOKALAEMIA
     Dosage: 2700 MG, TID
     Route: 048
     Dates: start: 20110110, end: 20110221

REACTIONS (1)
  - INTERSTITIAL LUNG DISEASE [None]
